FAERS Safety Report 26120060 (Version 2)
Quarter: 2025Q4

REPORT INFORMATION
  Report Type: Report from Study
  Country: US (occurrence: US)
  Receive Date: 20251204
  Receipt Date: 20251209
  Transmission Date: 20260118
  Serious: No
  Sender: SANDOZ
  Company Number: US-SANDOZ-SDZ2025US091272

PATIENT
  Sex: Male

DRUGS (2)
  1. OMNITROPE [Suspect]
     Active Substance: SOMATROPIN
     Indication: Short stature
     Dosage: 0.28 ML, QD, STRENGTH 5 MG/ML (OTHER )
     Route: 058
     Dates: start: 20251128
  2. OMNITROPE [Suspect]
     Active Substance: SOMATROPIN
     Indication: Short stature
     Dosage: 0.28 ML, QD, STRENGTH 5 MG/ML (OTHER )
     Route: 058
     Dates: start: 20251128

REACTIONS (2)
  - Injection site haemorrhage [Unknown]
  - Product dose confusion [Unknown]
